FAERS Safety Report 11909163 (Version 2)
Quarter: 2016Q1

REPORT INFORMATION
  Report Type: Report from Study
  Country: US (occurrence: US)
  Receive Date: 20160112
  Receipt Date: 20160330
  Transmission Date: 20160526
  Serious: No
  Sender: FDA-Public Use
  Company Number: US-AMGEN-USASL2016001185

PATIENT
  Age: 62 Year
  Sex: Female

DRUGS (1)
  1. ENBREL [Suspect]
     Active Substance: ETANERCEPT
     Indication: RHEUMATOID ARTHRITIS
     Dosage: UNK UNK, ONCE WEEKLY
     Route: 065
     Dates: start: 20150514, end: 20160320

REACTIONS (5)
  - Fibromyalgia [Unknown]
  - Chondropathy [Unknown]
  - Red blood cell sedimentation rate increased [Unknown]
  - Osteoarthritis [Unknown]
  - Pain [Unknown]
